FAERS Safety Report 25004765 (Version 4)
Quarter: 2025Q2

REPORT INFORMATION
  Report Type: Spontaneous
  Country: US (occurrence: US)
  Receive Date: 20250224
  Receipt Date: 20250411
  Transmission Date: 20250717
  Serious: No
  Sender: ROCHE
  Company Number: US-ROCHE-10000211133

PATIENT
  Age: 65 Year
  Sex: Female
  Weight: 66.22 kg

DRUGS (4)
  1. ACTEMRA ACTPEN [Suspect]
     Active Substance: TOCILIZUMAB
     Indication: Rheumatoid arthritis
     Route: 058
     Dates: start: 202501
  2. KEVZARA [Concomitant]
     Active Substance: SARILUMAB
     Indication: Rheumatoid arthritis
     Dates: start: 2023, end: 202412
  3. FOLIC ACID [Concomitant]
     Active Substance: FOLIC ACID
     Indication: Rheumatoid arthritis
     Dates: start: 2023
  4. FOLIC ACID [Concomitant]
     Active Substance: FOLIC ACID

REACTIONS (6)
  - Mass [Unknown]
  - Product packaging quantity issue [Unknown]
  - Haemorrhage [Recovered/Resolved]
  - Product communication issue [Unknown]
  - Malaise [Unknown]
  - Device defective [Unknown]

NARRATIVE: CASE EVENT DATE: 20250213
